FAERS Safety Report 13821119 (Version 5)
Quarter: 2018Q1

REPORT INFORMATION
  Report Type: Report from Study
  Country: None (occurrence: TR)
  Receive Date: 20170801
  Receipt Date: 20180221
  Transmission Date: 20180508
  Serious: Yes (Hospitalization, Other)
  Sender: FDA-Public Use
  Company Number: TR-ABBVIE-17P-161-2055892-00

PATIENT
  Sex: Female
  Weight: 54 kg

DRUGS (1)
  1. DUODOPA [Suspect]
     Active Substance: CARBIDOPA\LEVODOPA
     Indication: PARKINSON^S DISEASE
     Dosage: MORNING DOSE: 8.00 ML?CONTINUOUS DOSE. 3.70 ML?EXTRA DOSE: 1.00 ML
     Route: 050
     Dates: start: 20140513

REACTIONS (3)
  - Acute kidney injury [Not Recovered/Not Resolved]
  - Lung infection [Unknown]
  - Sepsis [Unknown]
